FAERS Safety Report 6738024-1 (Version None)
Quarter: 2010Q2

REPORT INFORMATION
  Report Type: 
  Country: None (occurrence: None)
  Receive Date: 20100524
  Receipt Date: 20100513
  Transmission Date: 20101027
  Serious: No
  Sender: FDA-Public Use
  Company Number: US-ASTRAZENECA-2010SE21964

PATIENT
  Age: 31 Year
  Sex: Male
  Weight: 108.9 kg

DRUGS (4)
  1. SEROQUEL [Suspect]
     Indication: SCHIZOPHRENIA, PARANOID TYPE
     Route: 048
     Dates: start: 19970101, end: 20010101
  2. SEROQUEL [Suspect]
     Dosage: 400 TO 600 MG, DAILY
     Route: 048
     Dates: start: 20010101, end: 20090101
  3. SEROQUEL [Suspect]
     Route: 048
     Dates: start: 20090101
  4. RED PILL TO ELEVATE WHITE COUNT [Concomitant]

REACTIONS (7)
  - DEHYDRATION [None]
  - NASAL CONGESTION [None]
  - NERVOUSNESS [None]
  - PANIC ATTACK [None]
  - PRURITUS [None]
  - SOMNOLENCE [None]
  - WHITE BLOOD CELL COUNT DECREASED [None]
